FAERS Safety Report 9486912 (Version 3)
Quarter: 2015Q1

REPORT INFORMATION
  Report Type: Spontaneous
  Country: US (occurrence: None)
  Receive Date: 20130827
  Receipt Date: 20150115
  Transmission Date: 20150721
  Serious: Yes (Hospitalization, Other)
  Sender: FDA-Public Use
  Company Number: JPI-P-034581

PATIENT
  Age: 52 Year
  Sex: Female

DRUGS (8)
  1. ABILIFY [Concomitant]
     Active Substance: ARIPIPRAZOLE
  2. KLONOPIN [Concomitant]
     Active Substance: CLONAZEPAM
  3. LEVOTHYROXINE [Concomitant]
     Active Substance: LEVOTHYROXINE
  4. XYREM [Suspect]
     Active Substance: SODIUM OXYBATE
     Indication: SOMNOLENCE
     Dosage: 2.25 GM 2 IN 1 D
     Route: 048
     Dates: start: 20111230
  5. TRIAMTERENE. [Concomitant]
     Active Substance: TRIAMTERENE
  6. LUVOX CR [Suspect]
     Active Substance: FLUVOXAMINE MALEATE
     Indication: OBSESSIVE-COMPULSIVE DISORDER
     Dosage: 1 TABLET
  7. BENAZEPRIL [Concomitant]
     Active Substance: BENAZEPRIL\BENAZEPRIL HYDROCHLORIDE
  8. LAMOTRIGINE. [Concomitant]
     Active Substance: LAMOTRIGINE

REACTIONS (5)
  - Hip arthroplasty [None]
  - Knee arthroplasty [None]
  - Device dislocation [None]
  - Off label use [None]
  - Shoulder arthroplasty [None]

NARRATIVE: CASE EVENT DATE: 201202
